FAERS Safety Report 4924900-9 (Version None)
Quarter: 2006Q1

REPORT INFORMATION
  Report Type: 
  Country: None (occurrence: None)
  Receive Date: 20060227
  Receipt Date: 20050706
  Transmission Date: 20060701
  Serious: Yes (Death, Hospitalization)
  Sender: FDA-Public Use
  Company Number: US-MERCK-0507USA00918

PATIENT
  Age: 80 Year
  Sex: Female
  Weight: 99 kg

DRUGS (3)
  1. VIOXX [Suspect]
     Indication: ARTHRITIS
     Route: 048
  2. BEXTRA [Concomitant]
     Route: 065
  3. CELEBREX [Concomitant]
     Route: 065

REACTIONS (5)
  - CARDIAC FAILURE CONGESTIVE [None]
  - CEREBROVASCULAR ACCIDENT [None]
  - HYPERTENSION [None]
  - KNEE ARTHROPLASTY [None]
  - PAIN [None]
